FAERS Safety Report 15500943 (Version 3)
Quarter: 2022Q1

REPORT INFORMATION
  Report Type: Report from Study
  Country: FR (occurrence: FR)
  Receive Date: 20181015
  Receipt Date: 20220204
  Transmission Date: 20220423
  Serious: Yes (Hospitalization, Other)
  Sender: FDA-Public Use
  Company Number: FR-SHIRE-FR201837946

PATIENT

DRUGS (7)
  1. ONCASPAR [Suspect]
     Active Substance: PEGASPARGASE
     Indication: Acute lymphocytic leukaemia
     Dosage: 900 IU, QD
     Route: 042
     Dates: start: 20180827, end: 20180827
  2. DEXAMETHASONE [Suspect]
     Active Substance: DEXAMETHASONE
     Indication: Acute lymphocytic leukaemia
     Dosage: 7 MG, 1X/DAY:QD
     Route: 048
     Dates: start: 20180824, end: 20180913
  3. VINCRISTINE [Suspect]
     Active Substance: VINCRISTINE
     Indication: Acute lymphocytic leukaemia
     Dosage: 1 MG, 1X/DAY:QD
     Route: 042
     Dates: start: 20180824, end: 20180914
  4. ADRIAMYCIN [Suspect]
     Active Substance: DOXORUBICIN HYDROCHLORIDE
     Indication: Acute lymphocytic leukaemia
     Dosage: 21 MG, 1X/DAY:QD
     Route: 042
     Dates: start: 20180824, end: 20180914
  5. CYTARABINE [Suspect]
     Active Substance: CYTARABINE
     Indication: Acute lymphocytic leukaemia
     Dosage: 25 MG, 1X/DAY:QD
     Route: 037
     Dates: start: 20180827
  6. HYDROCORTISONE [Suspect]
     Active Substance: HYDROCORTISONE
     Indication: Acute lymphocytic leukaemia
     Dosage: 12.5 MG, 1X/DAY:QD
     Route: 037
     Dates: start: 20180827
  7. METHOTREXATE [Suspect]
     Active Substance: METHOTREXATE
     Indication: Acute lymphocytic leukaemia
     Dosage: 10 MG, 1X/DAY:QD
     Route: 037
     Dates: start: 20180827

REACTIONS (4)
  - Febrile bone marrow aplasia [Recovered/Resolved]
  - Staphylococcal infection [Recovered/Resolved]
  - Mucosal inflammation [Recovered/Resolved]
  - Herpes simplex [Recovered/Resolved]

NARRATIVE: CASE EVENT DATE: 20180917
